FAERS Safety Report 8925521 (Version 2)
Quarter: 2012Q4

REPORT INFORMATION
  Report Type: 
  Country: US (occurrence: US)
  Receive Date: 20121126
  Receipt Date: 20121204
  Transmission Date: 20130627
  Serious: Yes (Hospitalization)
  Sender: FDA-Public Use
  Company Number: US-UCBSA-071168

PATIENT
  Age: 21 Year
  Sex: Male

DRUGS (5)
  1. CIMZIA [Suspect]
     Indication: CROHN^S DISEASE
  2. PREDNISONE [Concomitant]
     Indication: CROHN^S DISEASE
  3. AZATHIOPRINE [Concomitant]
     Indication: CROHN^S DISEASE
  4. B12 [Concomitant]
     Indication: SUPPLEMENTATION THERAPY
  5. ZOFRAN [Concomitant]
     Indication: NAUSEA
     Dosage: AS NEEDED

REACTIONS (1)
  - Appendicitis [Recovered/Resolved]
